FAERS Safety Report 5950088-1 (Version None)
Quarter: 2008Q4

REPORT INFORMATION
  Report Type: 
  Country: None (occurrence: None)
  Receive Date: 20081112
  Receipt Date: 20081106
  Transmission Date: 20090506
  Serious: Yes (Other)
  Sender: FDA-Public Use
  Company Number: US-WYE-H06764508

PATIENT
  Sex: Female

DRUGS (2)
  1. PREMARIN [Suspect]
     Indication: HORMONE REPLACEMENT THERAPY
     Dosage: 0.45MG DAILY
     Route: 048
     Dates: start: 20070101
  2. PREMARIN [Suspect]
     Dosage: 0.45MG DAILY
     Dates: start: 20080501, end: 20080101

REACTIONS (1)
  - ABDOMINAL NEOPLASM [None]
